FAERS Safety Report 8119698-X (Version None)
Quarter: 2012Q1

REPORT INFORMATION
  Report Type: 
  Country: None (occurrence: None)
  Receive Date: 20120207
  Receipt Date: 20120202
  Transmission Date: 20120608
  Serious: Yes (Death)
  Sender: FDA-Public Use
  Company Number: PHEH2012US001974

PATIENT
  Sex: Female

DRUGS (7)
  1. TERBINAFINE HCL [Concomitant]
  2. CYANOCOBALAMIN [Concomitant]
  3. DEXAMETHASONE [Concomitant]
  4. VALTURNA [Suspect]
     Dosage: 1 DF (150/160 MG), DAILY
     Route: 048
  5. FERROUS SULFATE TAB [Concomitant]
  6. DEPO-ESTRADIOL [Concomitant]
  7. OMEPRAZOLE [Concomitant]

REACTIONS (6)
  - LUNG INFECTION PSEUDOMONAL [None]
  - RESPIRATORY FAILURE [None]
  - OESOPHAGEAL CARCINOMA [None]
  - LUNG NEOPLASM MALIGNANT [None]
  - PNEUMONIA STAPHYLOCOCCAL [None]
  - POST PROCEDURAL COMPLICATION [None]
